FAERS Safety Report 8402625-5 (Version None)
Quarter: 2012Q2

REPORT INFORMATION
  Report Type: 
  Country: None (occurrence: None)
  Receive Date: 20120601
  Receipt Date: 20120529
  Transmission Date: 20120825
  Serious: Yes (Other)
  Sender: FDA-Public Use
  Company Number: CA-ROCHE-1054297

PATIENT
  Sex: Male

DRUGS (9)
  1. RITUXAN [Suspect]
     Indication: WEGENER'S GRANULOMATOSIS
     Route: 042
     Dates: start: 20120320, end: 20120405
  2. ACETAZOLAMIDE [Concomitant]
     Route: 048
  3. CRESTOR [Concomitant]
     Indication: BLOOD CHOLESTEROL INCREASED
     Route: 048
  4. ASPIRIN [Concomitant]
     Indication: UNEVALUABLE EVENT
     Dosage: INDICATION: BLOOD (NOS)
     Route: 048
  5. PREDNISONE TAB [Concomitant]
     Indication: BENIGN INTRACRANIAL HYPERTENSION
     Dosage: INDICATION:
     Route: 048
  6. RABEPRAZOLE SODIUM [Concomitant]
     Indication: GASTRIC DISORDER
     Dosage: INDICATION: STOMACH (NOS)
     Route: 048
  7. CELLCEPT [Suspect]
     Indication: WEGENER'S GRANULOMATOSIS
     Route: 048
     Dates: start: 20110921
  8. CLOPIDOGREL [Concomitant]
     Indication: UNEVALUABLE EVENT
     Dosage: INDICATION: HEART (NOS)
     Route: 048
  9. METOPROLOL TARTRATE [Concomitant]
     Indication: UNEVALUABLE EVENT
     Dosage: INDICATION: HEART (NOS)
     Route: 048

REACTIONS (4)
  - PARAESTHESIA [None]
  - CONVULSION [None]
  - DISTURBANCE IN ATTENTION [None]
  - HEADACHE [None]
